FAERS Safety Report 7653170-6 (Version None)
Quarter: 2011Q3

REPORT INFORMATION
  Report Type: 
  Country: None (occurrence: None)
  Receive Date: 20110803
  Receipt Date: 20110727
  Transmission Date: 20111222
  Serious: Yes (Life-Threatening)
  Sender: FDA-Public Use
  Company Number: CO-BAXTER-2011BH024700

PATIENT
  Age: 56 Year
  Sex: Male

DRUGS (2)
  1. GAMMAGARD LIQUID [Suspect]
     Indication: OFF LABEL USE
     Route: 042
     Dates: start: 20101201
  2. GAMMAGARD LIQUID [Suspect]
     Indication: DERMATOMYOSITIS
     Route: 042
     Dates: start: 20101201

REACTIONS (2)
  - BLOOD CREATININE INCREASED [None]
  - ACUTE PRERENAL FAILURE [None]
